FAERS Safety Report 7828547-6 (Version None)
Quarter: 2011Q4

REPORT INFORMATION
  Report Type: 
  Country: None (occurrence: None)
  Receive Date: 20111020
  Receipt Date: 20111020
  Transmission Date: 20120403
  Serious: Yes (Hospitalization)
  Sender: FDA-Public Use
  Company Number: None

PATIENT
  Age: 50 Year
  Sex: Female
  Weight: 47 kg

DRUGS (5)
  1. PANTOPRAZOLE [Concomitant]
     Route: 048
  2. SIMVASTATIN [Concomitant]
     Route: 048
  3. LEVOFLOXACIN [Concomitant]
     Route: 048
  4. CLOZAPINE [Suspect]
     Indication: SCHIZOPHRENIA
     Dosage: 200 MG
     Route: 048
  5. ENOXAPARIN [Concomitant]
     Route: 058

REACTIONS (4)
  - HALLUCINATION [None]
  - URINARY INCONTINENCE [None]
  - DYSTONIA [None]
  - LETHARGY [None]
